FAERS Safety Report 7643602-1 (Version None)
Quarter: 2011Q3

REPORT INFORMATION
  Report Type: 
  Country: None (occurrence: None)
  Receive Date: 20110729
  Receipt Date: 20110720
  Transmission Date: 20111222
  Serious: Yes (Hospitalization)
  Sender: FDA-Public Use
  Company Number: US-ABBOTT-11P-163-0840946-00

PATIENT
  Sex: Female

DRUGS (2)
  1. HUMIRA [Suspect]
     Indication: RHEUMATOID ARTHRITIS
     Route: 058
     Dates: start: 20110630, end: 20110630
  2. HUMIRA [Suspect]
     Indication: COLITIS ULCERATIVE

REACTIONS (4)
  - HEADACHE [None]
  - CHILLS [None]
  - PYREXIA [None]
  - CROHN'S DISEASE [None]
